FAERS Safety Report 9331763 (Version 2)
Quarter: 2013Q3

REPORT INFORMATION
  Report Type: Report from Study
  Country: US (occurrence: US)
  Receive Date: 20130605
  Receipt Date: 20130730
  Transmission Date: 20140515
  Serious: Yes (Hospitalization, Other)
  Sender: FDA-Public Use
  Company Number: US-ABBOTT-13P-163-1097113-00

PATIENT
  Sex: Female

DRUGS (7)
  1. HUMIRA [Suspect]
     Indication: RHEUMATOID ARTHRITIS
     Dates: start: 2004
  2. PREDNISONE [Concomitant]
     Indication: RHEUMATOID ARTHRITIS
  3. FIORICET [Concomitant]
     Indication: MIGRAINE
     Dosage: FOUR TIMES A DAY AS REQUIRED
  4. XANAX [Concomitant]
     Indication: ANXIETY
  5. ATENOLOL [Concomitant]
     Indication: CARDIAC DISORDER
     Dates: start: 2011
  6. DILTIAZEM [Concomitant]
     Indication: CARDIAC DISORDER
     Dates: start: 2011
  7. ARAVA [Concomitant]
     Indication: RHEUMATOID ARTHRITIS
     Dates: start: 20130520

REACTIONS (7)
  - Mitral valve replacement [Unknown]
  - Back pain [Unknown]
  - Thyroid function test abnormal [Unknown]
  - Arthralgia [Unknown]
  - Oedema peripheral [Unknown]
  - Hypoaesthesia [Unknown]
  - Muscle spasms [Recovering/Resolving]
